FAERS Safety Report 7314234-X (Version None)
Quarter: 2011Q1

REPORT INFORMATION
  Report Type: 
  Country: None (occurrence: None)
  Receive Date: 20110225
  Receipt Date: 20100722
  Transmission Date: 20110831
  Serious: No
  Sender: FDA-Public Use
  Company Number: US-MYLANLABS-2010S1010788

PATIENT
  Age: 16 Year
  Sex: Male

DRUGS (2)
  1. ADVIL [Concomitant]
  2. AMNESTEEM [Suspect]
     Indication: ACNE CYSTIC
     Route: 048
     Dates: start: 20100329, end: 20100611

REACTIONS (3)
  - BLOOD TRIGLYCERIDES INCREASED [None]
  - DYSPHAGIA [None]
  - OROPHARYNGEAL PAIN [None]
